FAERS Safety Report 4645290-5 (Version None)
Quarter: 2005Q2

REPORT INFORMATION
  Report Type: 
  Country: None (occurrence: None)
  Receive Date: 20050331
  Receipt Date: 20041216
  Transmission Date: 20051028
  Serious: No
  Sender: FDA-Public Use
  Company Number: 04P-163-0280001

PATIENT
  Age: 85 Year
  Sex: Female
  Weight: 47.1741 kg

DRUGS (17)
  1. HUMIRA [Suspect]
     Indication: RHEUMATOID ARTHRITIS
     Dosage: 40 MG, 1 IN 2 WK, SUBCUTANEOUS
     Route: 058
     Dates: start: 20040501
  2. AMLODIPINE BESYLATE [Concomitant]
  3. VALSARTAN [Concomitant]
  4. METOPROLOL SUCCINATE [Concomitant]
  5. POLYSACCHARIDE-IRON COMPLEX [Concomitant]
  6. CELECOXIB [Concomitant]
  7. COSOPT [Concomitant]
  8. OMEPRAZOLE [Concomitant]
  9. FLAVONOID [Concomitant]
  10. ADVANCE SMART GINGKO [Concomitant]
  11. GAVISCON [Concomitant]
  12. SALINE NASAL [Concomitant]
  13. REFRESH EYE DROPS [Concomitant]
  14. HYPOTEARS DDPF [Concomitant]
  15. MINERAL OIL EMULSION [Concomitant]
  16. BIOFLAVONOIDS [Concomitant]
  17. DOXYCYCLINE [Concomitant]

REACTIONS (5)
  - HEADACHE [None]
  - NAUSEA [None]
  - PRURITUS [None]
  - SWELLING [None]
  - VOMITING [None]
